FAERS Safety Report 11848312 (Version 1)
Quarter: 2015Q4

REPORT INFORMATION
  Report Type: Spontaneous
  Country: US (occurrence: US)
  Receive Date: 20151217
  Receipt Date: 20151217
  Transmission Date: 20160305
  Serious: No
  Sender: FDA-Public Use
  Company Number: US-HOSPIRA-2609700

PATIENT
  Sex: Female

DRUGS (2)
  1. SODIUM HYDROGEN CARBONATE [Suspect]
     Active Substance: SODIUM BICARBONATE
     Indication: MEDICATION DILUTION
     Dosage: NOT REPORTED, NOT REPORTED
  2. LIDOCAINE HYDROCHLORIDE. [Suspect]
     Active Substance: LIDOCAINE HYDROCHLORIDE
     Indication: PRODUCT USED FOR UNKNOWN INDICATION
     Dosage: NOT REPORTED, NOT REPORTED

REACTIONS (5)
  - Burning sensation [Unknown]
  - Tremor [Unknown]
  - Headache [Unknown]
  - Pain [Unknown]
  - Pruritus [Unknown]
